FAERS Safety Report 6131732-5 (Version None)
Quarter: 2009Q1

REPORT INFORMATION
  Report Type: 
  Country: None (occurrence: None)
  Receive Date: 20090325
  Receipt Date: 20090317
  Transmission Date: 20090719
  Serious: Yes (Other)
  Sender: FDA-Public Use
  Company Number: PHEH2009US02167

PATIENT
  Age: 63 Year
  Sex: Female
  Weight: 94.331 kg

DRUGS (9)
  1. RECLAST [Suspect]
     Indication: OSTEOPOROSIS
     Dosage: 5 MG, UNK
     Route: 042
     Dates: start: 20081202
  2. METHOTREXATE [Concomitant]
  3. ORENCIA [Concomitant]
  4. FOLATE SODIUM [Concomitant]
  5. PREDNISONE [Concomitant]
  6. MOBIC [Concomitant]
  7. LYRICA [Concomitant]
  8. ULTRAM [Concomitant]
  9. PANOREX [Concomitant]

REACTIONS (4)
  - BONE DISORDER [None]
  - ENDODONTIC PROCEDURE [None]
  - EXOSTOSIS [None]
  - MOUTH ULCERATION [None]
